FAERS Safety Report 7222146-5 (Version None)
Quarter: 2011Q1

REPORT INFORMATION
  Report Type: 
  Country: None (occurrence: None)
  Receive Date: 20110104
  Receipt Date: 20101220
  Transmission Date: 20110831
  Serious: Yes (Other)
  Sender: FDA-Public Use
  Company Number: AUR-APL-2010-03200

PATIENT
  Age: 56 Year
  Sex: Female

DRUGS (4)
  1. FENOFIBRATE [Concomitant]
  2. SIMVASTATIN [Suspect]
     Dosage: 40MG
  3. ATORVASTATIN [Suspect]
     Dosage: 10MG
  4. METFORMIN [Suspect]
     Dosage: 2 G

REACTIONS (3)
  - APOLIPOPROTEIN A-I DECREASED [None]
  - HIGH DENSITY LIPOPROTEIN DECREASED [None]
  - MYALGIA [None]
